FAERS Safety Report 13585356 (Version 2)
Quarter: 2017Q2

REPORT INFORMATION
  Report Type: Spontaneous
  Country: JP (occurrence: JP)
  Receive Date: 20170526
  Receipt Date: 20170607
  Transmission Date: 20170830
  Serious: Yes (Hospitalization)
  Sender: FDA-Public Use
  Company Number: JP-GLAXOSMITHKLINE-JP2017JPN075867

PATIENT
  Age: 70 Year
  Sex: Female
  Weight: 55 kg

DRUGS (7)
  1. LAMICTAL [Suspect]
     Active Substance: LAMOTRIGINE
     Dosage: 100 MG, QD
     Route: 048
     Dates: start: 20160620, end: 20160807
  2. SOLANAX [Suspect]
     Active Substance: ALPRAZOLAM
     Indication: DEPRESSION
     Dosage: 1.2 MG, 1D
     Route: 048
  3. LEXAPRO [Suspect]
     Active Substance: ESCITALOPRAM OXALATE
     Dosage: UNK
     Route: 048
  4. REFLEX [Suspect]
     Active Substance: MIRTAZAPINE
     Indication: DEPRESSION
     Dosage: 20 MG, 1D
     Route: 048
  5. LAMICTAL [Suspect]
     Active Substance: LAMOTRIGINE
     Indication: DEPRESSED MOOD
     Dosage: 25 MG, QD
     Route: 048
     Dates: start: 20160523, end: 20160605
  6. LAMICTAL [Suspect]
     Active Substance: LAMOTRIGINE
     Dosage: 50 MG, QD
     Route: 048
     Dates: start: 20160606, end: 20160619
  7. LAMICTAL [Suspect]
     Active Substance: LAMOTRIGINE
     Indication: DEPRESSION
     Dosage: 25 MG, QOD
     Route: 048
     Dates: start: 20160509, end: 20160522

REACTIONS (1)
  - Dropped head syndrome [Recovering/Resolving]

NARRATIVE: CASE EVENT DATE: 201607
